FAERS Safety Report 5369838-0 (Version None)
Quarter: 2007Q2

REPORT INFORMATION
  Report Type: 
  Country: None (occurrence: None)
  Receive Date: 20070531
  Receipt Date: 20070516
  Transmission Date: 20071010
  Serious: Yes (Hospitalization)
  Sender: FDA-Public Use
  Company Number: AEGBR200700129

PATIENT
  Sex: Male

DRUGS (2)
  1. IMMUNE GLOBULIN INTRAVENOUS (HUMAN) [Suspect]
     Indication: MULTIPLE MYELOMA
     Dosage: 40 GM; QD; IV
     Route: 042
     Dates: start: 20061218, end: 20061221
  2. VIGAM /01995701/ [Concomitant]

REACTIONS (4)
  - HYPERTENSION [None]
  - MALAISE [None]
  - PHOTOPHOBIA [None]
  - PUPILS UNEQUAL [None]
